FAERS Safety Report 8409845-4 (Version None)
Quarter: 2012Q2

REPORT INFORMATION
  Report Type: 
  Country: None (occurrence: None)
  Receive Date: 20120323
  Receipt Date: 20110203
  Transmission Date: 20120825
  Serious: Yes (Other)
  Sender: FDA-Public Use
  Company Number: 163-21880-11021012

PATIENT
  Age: 68 Year
  Sex: Male
  Weight: 81 kg

DRUGS (4)
  1. COUMADIN [Concomitant]
  2. VELCADE [Concomitant]
  3. REVLIMID [Suspect]
     Indication: MULTIPLE MYELOMA
     Dosage: 25 MG, DAILY FOR 3WKS THEN OFF FOR 1 WK, PO
     Route: 048
     Dates: start: 20101020
  4. DEXAMETHASONE [Concomitant]

REACTIONS (3)
  - DECREASED APPETITE [None]
  - THROMBOSIS [None]
  - HYPOGEUSIA [None]
